FAERS Safety Report 4496329-1 (Version None)
Quarter: 2004Q4

REPORT INFORMATION
  Report Type: 
  Country: None (occurrence: None)
  Receive Date: 20041109
  Receipt Date: 20041029
  Transmission Date: 20050328
  Serious: Yes (Other)
  Sender: FDA-Public Use
  Company Number: PHNR2004AU01586

PATIENT
  Age: 17 Year
  Sex: Female

DRUGS (3)
  1. NEORAL [Suspect]
     Indication: LIVER TRANSPLANT
     Dosage: 50MG MANE, 75MG NOCTE
     Route: 048
     Dates: start: 19890101
  2. GOPTEN [Concomitant]
     Indication: HYPERTENSION
     Dosage: .5 MG, UNK
  3. LEVLEN 28 [Concomitant]

REACTIONS (7)
  - HEPATOMEGALY [None]
  - HYPERTENSION [None]
  - LETHARGY [None]
  - MOOD SWINGS [None]
  - NIGHTMARE [None]
  - OEDEMA [None]
  - RENAL INJURY [None]
